FAERS Safety Report 4701146-0 (Version None)
Quarter: 2005Q2

REPORT INFORMATION
  Report Type: 
  Country: None (occurrence: None)
  Receive Date: 20050628
  Receipt Date: 20050520
  Transmission Date: 20051028
  Serious: Yes (Other)
  Sender: FDA-Public Use
  Company Number: JP-GLAXOSMITHKLINE-B0381902A

PATIENT
  Age: 85 Year
  Sex: Male
  Weight: 58 kg

DRUGS (1)
  1. MODACIN [Suspect]
     Route: 042
     Dates: start: 20050518, end: 20050520

REACTIONS (7)
  - GRANULOCYTOPENIA [None]
  - NEUTROPHIL COUNT DECREASED [None]
  - PLATELET COUNT DECREASED [None]
  - PROSTATITIS [None]
  - RED BLOOD CELL COUNT DECREASED [None]
  - URINARY RETENTION [None]
  - WHITE BLOOD CELL COUNT DECREASED [None]
